FAERS Safety Report 4780540-6 (Version None)
Quarter: 2005Q3

REPORT INFORMATION
  Report Type: 
  Country: None (occurrence: None)
  Receive Date: 20050926
  Receipt Date: 20050912
  Transmission Date: 20060218
  Serious: Yes (Hospitalization, Other)
  Sender: FDA-Public Use
  Company Number: 2002002905

PATIENT
  Age: 62 Year
  Sex: Male
  Weight: 48.9885 kg

DRUGS (9)
  1. VIAGRA [Suspect]
     Indication: ERECTILE DYSFUNCTION
     Dosage: (100 MG, 1 AS NECESSARY), ORAL
     Route: 048
     Dates: start: 20000101, end: 20050902
  2. HYTRIN [Suspect]
     Indication: BENIGN PROSTATIC HYPERPLASIA
     Dosage: 7 MG (1 IN 1 D), ORAL
     Route: 048
     Dates: start: 20020101
  3. HYTRIN [Suspect]
     Indication: HYPERTENSION
     Dosage: 7 MG (1 IN 1 D), ORAL
     Route: 048
     Dates: start: 20020101
  4. PLAVIX [Suspect]
     Indication: BLOOD DISORDER
     Dosage: 75 MG (1 IN 1 D), ORAL
     Route: 048
     Dates: start: 20011001
  5. PAXIL [Suspect]
     Indication: DEPRESSION
     Dosage: ORAL
     Route: 048
     Dates: start: 20020701, end: 20020701
  6. COUMADIN [Suspect]
     Indication: DEEP VEIN THROMBOSIS
     Dosage: SEE IMAGE5 MG (5 MG, 4 IN 1 WK)
     Dates: start: 20010101
  7. COUMADIN [Suspect]
     Indication: DEEP VEIN THROMBOSIS
     Dosage: SEE IMAGE5 MG (5 MG, 4 IN 1 WK)
     Dates: start: 20010101
  8. VITAMINS (VITAMINS) [Concomitant]
  9. ASPIRIN [Concomitant]

REACTIONS (12)
  - DEEP VEIN THROMBOSIS [None]
  - DEPRESSION [None]
  - DIFFICULTY IN WALKING [None]
  - DRUG INTERACTION [None]
  - EPISTAXIS [None]
  - ERECTILE DYSFUNCTION [None]
  - HYPERHIDROSIS [None]
  - MALAISE [None]
  - MUSCLE SPASMS [None]
  - PROSTATE CANCER [None]
  - PULMONARY EMBOLISM [None]
  - SINUS DISORDER [None]
